FAERS Safety Report 26158290 (Version 2)
Quarter: 2025Q4

REPORT INFORMATION
  Report Type: Report from Study
  Country: US (occurrence: US)
  Receive Date: 20251215
  Receipt Date: 20251216
  Transmission Date: 20260118
  Serious: No
  Sender: BRISTOL-MYERS SQUIBB COMPANY
  Company Number: US-BRISTOL-MYERS SQUIBB COMPANY-2025-167827

PATIENT
  Age: 91 Year
  Sex: Female

DRUGS (1)
  1. ELIQUIS [Suspect]
     Active Substance: APIXABAN
     Indication: Product used for unknown indication
     Dates: start: 202409

REACTIONS (6)
  - Erythema [Unknown]
  - Swelling [Unknown]
  - Rhinalgia [Unknown]
  - Contusion [Unknown]
  - Impaired healing [Unknown]
  - Nasal discomfort [Unknown]
